FAERS Safety Report 5489077-2 (Version None)
Quarter: 2007Q4

REPORT INFORMATION
  Report Type: 
  Country: None (occurrence: None)
  Receive Date: 20071005
  Receipt Date: 20070716
  Transmission Date: 20080405
  Serious: No
  Sender: FDA-Public Use
  Company Number: PHEH2007US08760

PATIENT
  Age: 79 Year
  Sex: Female
  Weight: 78.5 kg

DRUGS (9)
  1. TEKTURNA [Suspect]
     Indication: HYPERTENSION
     Dosage: 150 MG, QD,ORAL; 75 MG, QD
     Route: 048
     Dates: end: 20070531
  2. TEKTURNA [Suspect]
     Indication: HYPERTENSION
     Dosage: 150 MG, QD,ORAL; 75 MG, QD
     Route: 048
     Dates: start: 20070515, end: 20070612
  3. PLAVIX [Concomitant]
  4. CARDIZEM [Concomitant]
  5. GLYBURIDE [Concomitant]
  6. DIOVAN [Concomitant]
  7. SYNTHROID [Concomitant]
  8. FOSAMAX [Concomitant]
  9. NITROFURANTOIN [Concomitant]

REACTIONS (1)
  - PALPITATIONS [None]
